FAERS Safety Report 8175872-8 (Version None)
Quarter: 2012Q1

REPORT INFORMATION
  Report Type: 
  Country: None (occurrence: None)
  Receive Date: 20120228
  Receipt Date: 20120215
  Transmission Date: 20120608
  Serious: Yes (Other)
  Sender: FDA-Public Use
  Company Number: 2012SP009166

PATIENT
  Sex: Female

DRUGS (1)
  1. CHORIONIC GONADOTROPIN [Suspect]
     Indication: PRODUCT USED FOR UNKNOWN INDICATION

REACTIONS (4)
  - EXPOSURE VIA FATHER [None]
  - OFF LABEL USE [None]
  - ABORTION SPONTANEOUS [None]
  - ERECTILE DYSFUNCTION [None]
